FAERS Safety Report 5258484-5 (Version None)
Quarter: 2007Q1

REPORT INFORMATION
  Report Type: 
  Country: None (occurrence: None)
  Receive Date: 20070308
  Receipt Date: 20070301
  Transmission Date: 20070707
  Serious: Yes (Hospitalization)
  Sender: FDA-Public Use
  Company Number: US-AVENTIS-200711845GDDC

PATIENT
  Age: 56 Year
  Sex: Female
  Weight: 75.3 kg

DRUGS (12)
  1. TAXOTERE [Suspect]
     Indication: BREAST CANCER
     Route: 042
     Dates: start: 20050523, end: 20050523
  2. HYDROCHLOROTHIAZIDE [Concomitant]
     Indication: HYPERTENSION
     Route: 048
  3. NORVASC [Concomitant]
     Indication: HYPERTENSION
     Route: 048
  4. GEMFIBROZIL [Concomitant]
     Route: 048
  5. PRINIVIL [Concomitant]
     Route: 048
  6. COUMADIN [Concomitant]
     Route: 048
     Dates: start: 20050218
  7. NEURONTIN [Concomitant]
     Route: 048
     Dates: start: 20050208
  8. GLYBURIDE [Concomitant]
     Route: 048
     Dates: start: 20050502
  9. GENTAMICIN [Concomitant]
     Indication: CONJUNCTIVITIS
     Dosage: DOSE: 1-2 DROPS
     Route: 047
     Dates: start: 20050502
  10. ARANESP [Concomitant]
     Route: 058
     Dates: start: 20050228
  11. NEULASTA [Concomitant]
     Route: 058
     Dates: start: 20050411
  12. RED BLOOD CELLS [Concomitant]
     Dosage: DOSE: 2 UNITS
     Route: 042
     Dates: start: 20050523, end: 20050523

REACTIONS (3)
  - SKIN MACERATION [None]
  - VAGINAL HAEMORRHAGE [None]
  - VAGINAL PAIN [None]
